FAERS Safety Report 18871563 (Version 2)
Quarter: 2021Q1

REPORT INFORMATION
  Report Type: Spontaneous
  Country: GB (occurrence: GB)
  Receive Date: 20210210
  Receipt Date: 20210217
  Transmission Date: 20210420
  Serious: No
  Sender: FDA-Public Use
  Company Number: GB-SA-2021SA039503

PATIENT
  Age: 26 Year
  Sex: Female

DRUGS (1)
  1. DUPILUMAB [Suspect]
     Active Substance: DUPILUMAB
     Indication: DERMATITIS ATOPIC
     Dosage: UNK

REACTIONS (4)
  - Conjunctivitis [Recovering/Resolving]
  - Madarosis [Recovering/Resolving]
  - Blepharitis [Recovering/Resolving]
  - Ocular hyperaemia [Recovering/Resolving]
